FAERS Safety Report 7170898-5 (Version None)
Quarter: 2010Q4

REPORT INFORMATION
  Report Type: 
  Country: None (occurrence: None)
  Receive Date: 20101217
  Receipt Date: 20101208
  Transmission Date: 20110411
  Serious: Yes (Hospitalization, Other)
  Sender: FDA-Public Use
  Company Number: JP-ROCHE-739940

PATIENT
  Sex: Female

DRUGS (19)
  1. BEVACIZUMAB [Suspect]
     Indication: COLON CANCER
     Route: 041
     Dates: start: 20100811, end: 20101013
  2. BEVACIZUMAB [Suspect]
     Route: 041
     Dates: start: 20101119, end: 20101119
  3. IRINOTECAN HYDROCHLORIDE [Suspect]
     Dosage: REPORTED AS: CAMPTO(IRINOTECAN HYDROCHLORIDE)
     Route: 041
     Dates: start: 20100811, end: 20101013
  4. IRINOTECAN HYDROCHLORIDE [Suspect]
     Route: 041
     Dates: start: 20101119, end: 20101119
  5. FLUOROURACIL [Suspect]
     Indication: COLON CANCER
     Dosage: ROUTE: INTRAVENOUS BOLUS
     Route: 041
     Dates: start: 20100811, end: 20101013
  6. FLUOROURACIL [Suspect]
     Dosage: ROUTE: INTRAVENOUS DRIP
     Route: 041
     Dates: end: 20101015
  7. FLUOROURACIL [Suspect]
     Dosage: ROUTE:INTRAVENOUS BOLUS
     Route: 041
     Dates: start: 20101119, end: 20101119
  8. FLUOROURACIL [Suspect]
     Dosage: ROUTE:INTRAVENOUS DRIP
     Route: 041
     Dates: end: 20101121
  9. LEUCOVORIN CALCIUM [Suspect]
     Indication: COLON CANCER
     Dosage: REPORTED AS: LEVOFOLINATE(LEVOFOLINATE CALCIUM)
     Route: 041
     Dates: start: 20100811, end: 20101013
  10. LEUCOVORIN CALCIUM [Suspect]
     Route: 041
     Dates: start: 20101119, end: 20101119
  11. MAGNESIUM OXIDE [Concomitant]
     Indication: COLON CANCER
     Route: 048
  12. DAI-KENCHU-TO [Concomitant]
     Dosage: REPORTED AS:DAI-KENCHU-TO(DAI-KENCHU-TO), FORM: GRANULATED POWDER
     Route: 048
  13. PYRIDOXAL PHOSPHATE [Concomitant]
     Dosage: REPORTED AS:PYDOXAL TAB(PYRIDOXAL PHOSPHATE
     Route: 048
  14. SELBEX [Concomitant]
     Dosage: REPORTED AS : SELBEX (TEPRENONE)
     Route: 048
  15. TAKEPRON [Concomitant]
     Route: 048
  16. VOLTAREN [Concomitant]
     Route: 048
  17. GABAPENTIN [Concomitant]
     Route: 048
  18. HACHIAZULE [Concomitant]
     Dosage: OROPHARINGEAL
     Route: 050
  19. KETOPROFEN [Concomitant]
     Route: 062

REACTIONS (5)
  - BACK PAIN [None]
  - ESCHERICHIA SEPSIS [None]
  - SEPSIS [None]
  - SPINAL COMPRESSION FRACTURE [None]
  - URINARY TRACT INFECTION [None]
